FAERS Safety Report 6710600-1 (Version None)
Quarter: 2010Q2

REPORT INFORMATION
  Report Type: 
  Country: None (occurrence: None)
  Receive Date: 20100430
  Receipt Date: 20100422
  Transmission Date: 20101027
  Serious: Yes (Death, Other)
  Sender: FDA-Public Use
  Company Number: 572425

PATIENT
  Age: 60 Year
  Sex: Male
  Weight: 134 kg

DRUGS (4)
  1. OXALIPLATIN [Suspect]
     Indication: COLORECTAL CANCER METASTATIC
     Dosage: 260 MG MILLIGRAM(S), 3 WEEK, INTRAVENOUS
     Route: 042
     Dates: start: 20091021
  2. AVASTIN [Suspect]
     Indication: COLORECTAL CANCER METASTATIC
     Dosage: 700 MG MILLIGRAM(S) INTRAVENOUS
     Route: 042
     Dates: start: 20091027
  3. DEXAMETHASONE [Suspect]
     Indication: PROPHYLAXIS OF NAUSEA AND VOMITING
     Dosage: 4 MG MILLIGRAM(S) ORAL
     Route: 048
  4. METOCLOPRAMIDE HYDROCHLORIDE [Suspect]
     Indication: PROPHYLAXIS OF NAUSEA AND VOMITING
     Dosage: 10 MG MILLIGRAM(S) ORAL
     Route: 048

REACTIONS (9)
  - ASCITES [None]
  - CONSTIPATION [None]
  - HAEMOGLOBIN DECREASED [None]
  - HYPOTENSION [None]
  - MALIGNANT NEOPLASM PROGRESSION [None]
  - NEUTROPHIL COUNT DECREASED [None]
  - PULMONARY EMBOLISM [None]
  - SEPSIS [None]
  - TACHYCARDIA [None]
